FAERS Safety Report 19628232 (Version 1)
Quarter: 2021Q3

REPORT INFORMATION
  Report Type: Spontaneous
  Country: US (occurrence: US)
  Receive Date: 20210728
  Receipt Date: 20210728
  Transmission Date: 20211014
  Serious: Yes (Hospitalization)
  Sender: FDA-Public Use
  Company Number: NVSC2021US162543

PATIENT
  Age: 65 Year
  Sex: Female

DRUGS (1)
  1. AMANTADINE. [Suspect]
     Active Substance: AMANTADINE HYDROCHLORIDE
     Indication: PRODUCT USED FOR UNKNOWN INDICATION
     Dosage: UNK
     Route: 065

REACTIONS (4)
  - Hip fracture [Unknown]
  - Dizziness [Unknown]
  - Fall [Unknown]
  - Blood pressure orthostatic abnormal [Unknown]

NARRATIVE: CASE EVENT DATE: 20210605
